FAERS Safety Report 10098284 (Version 2)
Quarter: 2014Q2

REPORT INFORMATION
  Report Type: Spontaneous
  Country: CA (occurrence: None)
  Receive Date: 20140421
  Receipt Date: 20140523
  Transmission Date: 20141212
  Serious: Yes (Other)
  Sender: FDA-Public Use
  Company Number: SIM_00567_2014

PATIENT
  Sex: Female

DRUGS (1)
  1. DRY EYE RELIEF (HOMEOPATHIC) [Suspect]
     Indication: PRODUCT USED FOR UNKNOWN INDICATION
     Dosage: 1 DROP / ONCE / OPHTHALMIC
     Route: 047
     Dates: start: 20130901, end: 20130901

REACTIONS (1)
  - Anaphylactic shock [None]
